FAERS Safety Report 8416097-8 (Version None)
Quarter: 2012Q2

REPORT INFORMATION
  Report Type: 
  Country: None (occurrence: None)
  Receive Date: 20120606
  Receipt Date: 20120531
  Transmission Date: 20120825
  Serious: Yes (Death)
  Sender: FDA-Public Use
  Company Number: US-ROCHE-1073597

PATIENT
  Sex: Female
  Weight: 56.75 kg

DRUGS (10)
  1. FUROSEMIDE/POTASSIUM CHLORIDE [Concomitant]
  2. ACTEMRA [Suspect]
     Route: 042
     Dates: start: 20120530
  3. CARVEDILOL [Concomitant]
  4. DILTIAZEM [Concomitant]
  5. ACTEMRA [Suspect]
     Indication: RHEUMATOID ARTHRITIS
     Route: 042
     Dates: start: 20120320, end: 20120530
  6. NITROSTAT [Concomitant]
  7. PANTOPRAZOLE SODIUM [Concomitant]
  8. AMLODIPINE [Concomitant]
  9. FISH OIL [Concomitant]
  10. ACTEMRA [Suspect]
     Route: 042
     Dates: start: 20120501

REACTIONS (1)
  - CARDIAC DISORDER [None]
